FAERS Safety Report 16846786 (Version 2)
Quarter: 2019Q3

REPORT INFORMATION
  Report Type: Spontaneous
  Country: JP (occurrence: JP)
  Receive Date: 20190924
  Receipt Date: 20190930
  Transmission Date: 20191005
  Serious: Yes (Hospitalization)
  Sender: FDA-Public Use
  Company Number: JP-SA-2019SA264617

PATIENT
  Age: 78 Year
  Sex: Female

DRUGS (1)
  1. XYZAL [Suspect]
     Active Substance: LEVOCETIRIZINE DIHYDROCHLORIDE
     Indication: PRURITUS
     Dosage: 5 MG, QD
     Route: 048

REACTIONS (4)
  - Pain [Unknown]
  - Somnolence [Unknown]
  - Creatinine renal clearance abnormal [Unknown]
  - Musculoskeletal disorder [Unknown]
